FAERS Safety Report 8596131-5 (Version None)
Quarter: 2012Q3

REPORT INFORMATION
  Report Type: 
  Country: None (occurrence: None)
  Receive Date: 20120801
  Receipt Date: 20120719
  Transmission Date: 20120928
  Serious: Yes (Other)
  Sender: FDA-Public Use
  Company Number: JP-2012-15885

PATIENT
  Age: 88 Year
  Sex: Male
  Weight: 76 kg

DRUGS (11)
  1. HANP (CARPERITIDE) [Concomitant]
  2. LASIX [Concomitant]
  3. CARVEDILOL [Concomitant]
  4. SPIRONOLACTONE [Suspect]
     Indication: CARDIAC FAILURE
     Dosage: 25 MG MILLIGRAM(S), DAILY DOSE, ORAL
     Route: 048
     Dates: end: 20120701
  5. PIMOBENDAN (PIMOBENDAN) [Concomitant]
  6. ALLOPURINOL [Concomitant]
  7. SAMSCA [Suspect]
     Indication: FLUID RETENTION
     Dosage: 15 MG MILLIGRAM(S), QAM, ORAL, 7.5 MILLIGRAM(S), QAM, ORAL
     Route: 048
     Dates: start: 20120705
  8. SAMSCA [Suspect]
     Indication: FLUID RETENTION
     Dosage: 15 MG MILLIGRAM(S), QAM, ORAL, 7.5 MILLIGRAM(S), QAM, ORAL
     Route: 048
     Dates: start: 20120628, end: 20120704
  9. DOPAMINE HYDROCHLORIDE [Concomitant]
  10. WARFARIN SODIUM [Concomitant]
  11. ENALAPRIL MALEATE [Suspect]
     Indication: CARDIAC FAILURE
     Dosage: 5 MG MILLIGRAM(S), DAILY DOSE, ORAL
     Route: 048
     Dates: end: 20120701

REACTIONS (5)
  - RENAL IMPAIRMENT [None]
  - HYPERKALAEMIA [None]
  - RENAL FAILURE [None]
  - HAEMODIALYSIS [None]
  - CARDIAC FAILURE [None]
